FAERS Safety Report 23231667 (Version 2)
Quarter: 2023Q4

REPORT INFORMATION
  Report Type: Spontaneous
  Country: JP (occurrence: None)
  Receive Date: 20231127
  Receipt Date: 20231204
  Transmission Date: 20240109
  Serious: Yes (Death)
  Sender: FDA-Public Use
  Company Number: 2023A268978

PATIENT
  Age: 100 Year
  Sex: Female

DRUGS (2)
  1. ONDEXXYA [Suspect]
     Active Substance: ANDEXANET ALFA
     Indication: Subdural haematoma
     Dosage: 5V
     Route: 041
     Dates: start: 20230219, end: 20230219
  2. ELIQUIS [Concomitant]
     Active Substance: APIXABAN
     Dates: start: 20230218

REACTIONS (1)
  - Pneumonia aspiration [Fatal]
